FAERS Safety Report 25179113 (Version 3)
Quarter: 2025Q4

REPORT INFORMATION
  Report Type: Spontaneous
  Country: US (occurrence: US)
  Receive Date: 20250409
  Receipt Date: 20251009
  Transmission Date: 20260118
  Serious: No
  Sender: SANOFI AVENTIS
  Company Number: US-SA-2025SA101002

PATIENT
  Age: 46 Year
  Sex: Female

DRUGS (3)
  1. DUPIXENT [Suspect]
     Active Substance: DUPILUMAB
     Indication: Asthma
     Dosage: 300 MG, QOW
     Route: 058
     Dates: start: 20250315
  2. DUPIXENT [Suspect]
     Active Substance: DUPILUMAB
     Indication: Nasal polyps
  3. DUPIXENT [Suspect]
     Active Substance: DUPILUMAB
     Indication: Nasal polyps

REACTIONS (10)
  - Cough [Unknown]
  - Throat irritation [Unknown]
  - Dry throat [Unknown]
  - Injection site pain [Recovered/Resolved]
  - Nasal congestion [Recovered/Resolved]
  - Condition aggravated [Recovered/Resolved]
  - Product dose omission issue [Unknown]
  - Ear pruritus [Recovered/Resolved]
  - Sneezing [Recovered/Resolved]
  - Ear discomfort [Not Recovered/Not Resolved]

NARRATIVE: CASE EVENT DATE: 20250101
